FAERS Safety Report 13051549 (Version 1)
Quarter: 2016Q4

REPORT INFORMATION
  Report Type: Spontaneous
  Country: GR (occurrence: GR)
  Receive Date: 20161221
  Receipt Date: 20161221
  Transmission Date: 20170207
  Serious: Yes (Other)
  Sender: FDA-Public Use
  Company Number: GR-AMGEN-GRCSP2016177704

PATIENT
  Sex: Female

DRUGS (1)
  1. PROLIA [Suspect]
     Active Substance: DENOSUMAB
     Indication: OSTEOPOROSIS
     Dosage: 60 MG, UNK
     Route: 065
     Dates: start: 20161128

REACTIONS (7)
  - Activities of daily living impaired [Unknown]
  - Hypoaesthesia [Unknown]
  - Genital pain [Unknown]
  - Dysaesthesia [Unknown]
  - Myalgia [Unknown]
  - Asthenia [Unknown]
  - Lymphadenitis [Unknown]

NARRATIVE: CASE EVENT DATE: 2016
